FAERS Safety Report 4982503-4 (Version None)
Quarter: 2006Q2

REPORT INFORMATION
  Report Type: 
  Country: None (occurrence: None)
  Receive Date: 20060425
  Receipt Date: 20060419
  Transmission Date: 20061013
  Serious: Yes (Death, Other)
  Sender: FDA-Public Use
  Company Number: US-JNJFOC-20060305437

PATIENT
  Age: 44 Year
  Sex: Female
  Weight: 95.26 kg

DRUGS (2)
  1. FENTANYL [Suspect]
  2. METHADONE [Concomitant]

REACTIONS (4)
  - CONVULSION [None]
  - DRUG ABUSER [None]
  - OVERDOSE [None]
  - RENAL DISORDER [None]
